FAERS Safety Report 9366179 (Version 2)
Quarter: 2013Q3

REPORT INFORMATION
  Report Type: Spontaneous
  Country: JP (occurrence: JP)
  Receive Date: 20130625
  Receipt Date: 20130716
  Transmission Date: 20140515
  Serious: Yes (Death)
  Sender: FDA-Public Use
  Company Number: JP-ASTELLAS-2013JP006933

PATIENT
  Age: 80 Year
  Sex: Male
  Weight: 53 kg

DRUGS (4)
  1. PROGRAF [Suspect]
     Indication: RHEUMATOID VASCULITIS
     Dosage: 3 MG, UID/QD
     Route: 048
     Dates: start: 20111107, end: 20130521
  2. CIMZIA [Concomitant]
     Indication: RHEUMATOID VASCULITIS
     Dosage: 400 MG, UID/QD
     Route: 058
     Dates: start: 20130416, end: 20130416
  3. ACTEMRA [Concomitant]
     Indication: RHEUMATOID VASCULITIS
     Dosage: UNK
     Route: 041
     Dates: start: 20110714, end: 20130416
  4. PREDONINE                          /00016201/ [Concomitant]
     Indication: RHEUMATOID VASCULITIS
     Dosage: 30 MG, UNKNOWN/D
     Route: 048
     Dates: start: 20061010

REACTIONS (1)
  - Pulmonary fibrosis [Fatal]
